FAERS Safety Report 6761792-X (Version None)
Quarter: 2010Q2

REPORT INFORMATION
  Report Type: 
  Country: None (occurrence: None)
  Receive Date: 20100609
  Receipt Date: 20100604
  Transmission Date: 20101027
  Serious: Yes (Other)
  Sender: FDA-Public Use
  Company Number: US-BAYER-201022409NA

PATIENT
  Age: 53 Year
  Sex: Female

DRUGS (11)
  1. BETASERON [Suspect]
     Indication: MULTIPLE SCLEROSIS
     Route: 058
     Dates: start: 20100501
  2. BETASERON [Suspect]
     Dosage: TOTAL DAILY DOSE: 4 MIU
     Route: 058
     Dates: start: 20090209
  3. BETASERON [Suspect]
     Dosage: TOTAL DAILY DOSE: 6 MIU
     Route: 058
     Dates: start: 20090209
  4. AMANTADINE HCL [Suspect]
  5. AMANTADINE HCL [Suspect]
  6. VESICARE [Concomitant]
  7. LEVOTHYROXINE SODIUM [Concomitant]
  8. NEXIUM [Concomitant]
  9. TOPAMAX [Concomitant]
  10. ZANAFLEX [Concomitant]
  11. ALEVE (CAPLET) [Concomitant]

REACTIONS (4)
  - CONJUNCTIVAL HAEMORRHAGE [None]
  - INFLUENZA LIKE ILLNESS [None]
  - INJECTION SITE HAEMATOMA [None]
  - PLATELET COUNT DECREASED [None]
